FAERS Safety Report 9170432 (Version 1)
Quarter: 2013Q1

REPORT INFORMATION
  Report Type: Spontaneous
  Country: JP (occurrence: None)
  Receive Date: 20130312
  Receipt Date: 20130312
  Transmission Date: 20140127
  Serious: Yes (Hospitalization)
  Sender: FDA-Public Use
  Company Number: TPA2013A01982

PATIENT
  Age: 81 Year
  Sex: Male

DRUGS (1)
  1. FEBURIC (FEBUXOSTAT) [Suspect]
     Indication: HYPERURICAEMIA
     Route: 048
     Dates: start: 20130217, end: 20130223

REACTIONS (3)
  - Generalised erythema [None]
  - Pruritus [None]
  - Blood creatinine increased [None]
